FAERS Safety Report 9832921 (Version 2)
Quarter: 2014Q1

REPORT INFORMATION
  Report Type: Spontaneous
  Country: DE (occurrence: JP)
  Receive Date: 20140121
  Receipt Date: 20140205
  Transmission Date: 20141002
  Serious: Yes (Hospitalization)
  Sender: FDA-Public Use
  Company Number: JP-FRI-1000052944

PATIENT
  Age: 83 Year
  Sex: Female

DRUGS (10)
  1. MEMANTINE [Suspect]
  2. ROZEREM [Concomitant]
  3. LENDORMIN [Concomitant]
  4. ARTIST [Concomitant]
  5. RENIVACE [Concomitant]
  6. LASIX [Concomitant]
  7. ALDACTONE A [Concomitant]
  8. DIGOSIN [Concomitant]
  9. PURSENNID [Concomitant]
  10. WARFARIN [Concomitant]

REACTIONS (3)
  - Convulsion [Recovered/Resolved]
  - Syncope [Recovered/Resolved]
  - Psychiatric symptom [Recovered/Resolved]
